FAERS Safety Report 12289817 (Version 1)
Quarter: 2016Q2

REPORT INFORMATION
  Report Type: Spontaneous
  Country: US (occurrence: US)
  Receive Date: 20160421
  Receipt Date: 20160421
  Transmission Date: 20160815
  Serious: Yes (Other)
  Sender: FDA-Public Use
  Company Number: US-TEVA-597675USA

PATIENT
  Age: 61 Year
  Sex: Male
  Weight: 63.56 kg

DRUGS (3)
  1. ANAGRELIDE [Suspect]
     Active Substance: ANAGRELIDE
     Dosage: 3 MILLIGRAM DAILY; 3 TABLETS IN THE MORNING, 3 TABLETS AT NIGHT
     Route: 065
     Dates: start: 20150626
  2. ANAGRELIDE [Suspect]
     Active Substance: ANAGRELIDE
     Indication: PLATELET COUNT INCREASED
     Dosage: 2 MILLIGRAM DAILY; 2 TABLETS IN THE MORNING, 2 TABLETS AT NIGHT
     Route: 065
     Dates: start: 201007, end: 201502
  3. ANAGRELIDE [Suspect]
     Active Substance: ANAGRELIDE
     Dosage: 2.5 MILLIGRAM DAILY; 2 TABLETS IN THE MORNING, 3 TABLETS AT NIGHT
     Route: 065
     Dates: start: 201502, end: 20150626

REACTIONS (4)
  - Alopecia [Unknown]
  - Headache [Unknown]
  - Palpitations [Unknown]
  - Platelet count increased [Unknown]

NARRATIVE: CASE EVENT DATE: 201007
